FAERS Safety Report 20195364 (Version 1)
Quarter: 2021Q4

REPORT INFORMATION
  Report Type: Spontaneous
  Country: RS (occurrence: RS)
  Receive Date: 20211216
  Receipt Date: 20211216
  Transmission Date: 20220303
  Serious: Yes (Death, Other)
  Sender: FDA-Public Use
  Company Number: RS-BoehringerIngelheim-2021-BI-143838

PATIENT

DRUGS (1)
  1. GILOTRIF [Suspect]
     Active Substance: AFATINIB
     Indication: Product used for unknown indication

REACTIONS (7)
  - Death [Fatal]
  - Disease progression [Unknown]
  - Rash [Unknown]
  - Diarrhoea [Unknown]
  - Paronychia [Unknown]
  - Dry skin [Unknown]
  - Pruritus [Unknown]
